FAERS Safety Report 4961728-8 (Version None)
Quarter: 2006Q1

REPORT INFORMATION
  Report Type: 
  Country: None (occurrence: None)
  Receive Date: 20060329
  Receipt Date: 20060120
  Transmission Date: 20060701
  Serious: Yes (Other)
  Sender: FDA-Public Use
  Company Number: 805#1#2006-00003

PATIENT
  Age: 90 Year
  Sex: Female

DRUGS (8)
  1. ALPROSTADIL [Suspect]
     Indication: ARTERIOSCLEROSIS OBLITERANS
     Dosage: 120 MCG (60 MCG 2 IN 1 DAY (S)), INTRAVENOUS DRIP
     Route: 041
     Dates: start: 20051219, end: 20060102
  2. SODIUM BICARBONATE IN PLASTIC CONTAINER [Concomitant]
  3. CEFOTIAM HYDROCHLORIDE [Concomitant]
  4. PHYSIOLOGICAL SALINE [Concomitant]
  5. SODIUM CHLORIDE 0.9% [Concomitant]
  6. SOLITA T (ELECTROLYTES NOS) [Concomitant]
  7. SULBACTAM SODIUM/AMPICILLIN SODIUM (AMPICILLIN SODIUM, SULBACTAM SODIU [Concomitant]
  8. NEUROTROPIN (ORGAN LYSATE, STANDARDIZED) [Concomitant]

REACTIONS (4)
  - DIZZINESS [None]
  - HYPONATRAEMIA [None]
  - LOSS OF CONSCIOUSNESS [None]
  - ORAL INTAKE REDUCED [None]
